FAERS Safety Report 13885594 (Version 1)
Quarter: 2017Q3

REPORT INFORMATION
  Report Type: Spontaneous
  Country: US (occurrence: US)
  Receive Date: 20170821
  Receipt Date: 20170821
  Transmission Date: 20171127
  Serious: No
  Sender: FDA-Public Use
  Company Number: US-PFIZER INC-2017358778

PATIENT
  Age: 30 Year
  Sex: Female
  Weight: 68.4 kg

DRUGS (5)
  1. PROZAC [Suspect]
     Active Substance: FLUOXETINE HYDROCHLORIDE
     Dosage: 40 MG, 1X/DAY
     Route: 048
     Dates: start: 201706
  2. XANAX [Suspect]
     Active Substance: ALPRAZOLAM
     Indication: ANXIETY
     Dosage: 0.5 MG, 2X/DAY
     Route: 048
     Dates: start: 2014
  3. PROZAC [Suspect]
     Active Substance: FLUOXETINE HYDROCHLORIDE
     Indication: DEPRESSION
     Dosage: 10 MG, 1X/DAY
     Route: 048
     Dates: start: 2014
  4. XANAX [Suspect]
     Active Substance: ALPRAZOLAM
     Dosage: 1MG TABLET TWICE A DAY MORNING AND EVENING
     Route: 048
  5. PROZAC [Suspect]
     Active Substance: FLUOXETINE HYDROCHLORIDE
     Dosage: 20 MG
     Route: 048

REACTIONS (2)
  - Memory impairment [Not Recovered/Not Resolved]
  - Obsessive-compulsive disorder [Unknown]

NARRATIVE: CASE EVENT DATE: 201706
